FAERS Safety Report 4303710-X (Version None)
Quarter: 2004Q1

REPORT INFORMATION
  Report Type: 
  Country: None (occurrence: None)
  Receive Date: 20040220
  Receipt Date: 20031124
  Transmission Date: 20041129
  Serious: Yes (Other)
  Sender: FDA-Public Use
  Company Number: MESA00203003342

PATIENT
  Age: 60 Year
  Sex: Female

DRUGS (2)
  1. ROWASA [Suspect]
     Indication: COLITIS ULCERATIVE
     Dosage: 1 DF ONCE RC
     Dates: start: 20031001, end: 20031001
  2. ASACOL [Concomitant]

REACTIONS (1)
  - ANAPHYLACTIC REACTION [None]
